FAERS Safety Report 25930274 (Version 1)
Quarter: 2025Q4

REPORT INFORMATION
  Report Type: Spontaneous
  Country: IN (occurrence: IN)
  Receive Date: 20251016
  Receipt Date: 20251016
  Transmission Date: 20260117
  Serious: Yes (Hospitalization, Disabling, Other)
  Sender: B. BRAUN MEDICAL INC.
  Company Number: IN-BBM-IN-BBM-202503998

PATIENT
  Age: 32 Year
  Sex: Female

DRUGS (1)
  1. DEXTROSE [Suspect]
     Active Substance: DEXTROSE MONOHYDRATE
     Indication: Pyrexia
     Dosage: INFUSION

REACTIONS (2)
  - Aspergillus infection [Not Recovered/Not Resolved]
  - Product contamination microbial [Not Recovered/Not Resolved]
